FAERS Safety Report 26122957 (Version 1)
Quarter: 2025Q4

REPORT INFORMATION
  Report Type: Spontaneous
  Country: EU (occurrence: EU)
  Receive Date: 20251204
  Receipt Date: 20251204
  Transmission Date: 20260117
  Serious: Yes (Life-Threatening)
  Sender: PFIZER
  Company Number: None

PATIENT
  Sex: Female

DRUGS (2)
  1. ATRACURIUM BESYLATE [Suspect]
     Active Substance: ATRACURIUM BESYLATE
     Dosage: 1 DF, SINGLE
     Route: 042
     Dates: start: 20250416, end: 20250416
  2. MIDAZOLAM [Suspect]
     Active Substance: MIDAZOLAM
     Indication: Light anaesthesia
     Dosage: UNK

REACTIONS (2)
  - Wrong product administered [Unknown]
  - Respiratory distress [Recovered/Resolved]

NARRATIVE: CASE EVENT DATE: 20250416
